FAERS Safety Report 6838633-5 (Version None)
Quarter: 2010Q3

REPORT INFORMATION
  Report Type: 
  Country: None (occurrence: None)
  Receive Date: 20100713
  Receipt Date: 20070619
  Transmission Date: 20110219
  Serious: No
  Sender: FDA-Public Use
  Company Number: US-PFIZER INC-2007050820

PATIENT
  Sex: Female

DRUGS (5)
  1. CHANTIX [Suspect]
     Dates: start: 20070419
  2. MOBIC [Concomitant]
  3. ZOLOFT [Concomitant]
  4. ASTELIN [Concomitant]
  5. TUSSIN DM [Concomitant]

REACTIONS (5)
  - CONSTIPATION [None]
  - DIZZINESS [None]
  - FLATULENCE [None]
  - HEADACHE [None]
  - NAUSEA [None]
